FAERS Safety Report 19945107 (Version 1)
Quarter: 2021Q4

REPORT INFORMATION
  Report Type: Spontaneous
  Country: CN (occurrence: CN)
  Receive Date: 20211012
  Receipt Date: 20211012
  Transmission Date: 20220303
  Serious: Yes (Other)
  Sender: FDA-Public Use
  Company Number: CN-GLAXOSMITHKLINE-CN2021APC209873

PATIENT
  Age: 27 Year
  Sex: Female
  Weight: 84 kg

DRUGS (2)
  1. MUPIROCIN [Suspect]
     Active Substance: MUPIROCIN
     Indication: Chromoblastomycosis
     Dosage: 1 G, QD
     Route: 061
     Dates: start: 20210831, end: 20210923
  2. TOBRAMYCIN EYE DROPS [Concomitant]
     Indication: Dermatitis
     Dosage: 1 G, QD
     Route: 061
     Dates: start: 20210907, end: 20210923

REACTIONS (1)
  - Erythema induratum [Recovered/Resolved]

NARRATIVE: CASE EVENT DATE: 20210915
